FAERS Safety Report 10622424 (Version 1)
Quarter: 2014Q4

REPORT INFORMATION
  Report Type: Spontaneous
  Country: DE (occurrence: DE)
  Receive Date: 20141203
  Receipt Date: 20141203
  Transmission Date: 20150529
  Serious: Yes (Hospitalization)
  Sender: FDA-Public Use
  Company Number: DE-ELI_LILLY_AND_COMPANY-DE201411008172

PATIENT
  Age: 40 Year
  Sex: Male

DRUGS (15)
  1. ORFIRIL [Suspect]
     Active Substance: VALPROIC ACID
     Indication: PRODUCT USED FOR UNKNOWN INDICATION
     Dosage: 450 MG, QD
     Route: 048
     Dates: start: 20130220, end: 20130221
  2. ORFIRIL [Suspect]
     Active Substance: VALPROIC ACID
     Dosage: 900 MG, QD
     Route: 048
     Dates: start: 20130221, end: 20130222
  3. ORFIRIL [Suspect]
     Active Substance: VALPROIC ACID
     Dosage: 1200 MG, QD
     Route: 048
     Dates: start: 20130222, end: 20130223
  4. ZYPREXA [Suspect]
     Active Substance: OLANZAPINE
     Dosage: 15 MG, QD
     Route: 048
     Dates: start: 20130206, end: 20130227
  5. DIAZEPAM. [Suspect]
     Active Substance: DIAZEPAM
     Dosage: 17.5 MG, QD
     Route: 048
     Dates: start: 20130206, end: 20130207
  6. DIAZEPAM. [Suspect]
     Active Substance: DIAZEPAM
     Dosage: UNK
     Route: 048
     Dates: start: 20130301, end: 20130318
  7. ZYPREXA [Suspect]
     Active Substance: OLANZAPINE
     Indication: PRODUCT USED FOR UNKNOWN INDICATION
     Dosage: 10 MG, QD
     Route: 048
     Dates: start: 20130203, end: 20130206
  8. BISOPROLOL [Concomitant]
     Active Substance: BISOPROLOL
     Indication: PRODUCT USED FOR UNKNOWN INDICATION
     Dosage: 5 MG, QD
     Route: 048
     Dates: start: 20130203, end: 20130227
  9. RAMIPRIL. [Concomitant]
     Active Substance: RAMIPRIL
     Indication: PRODUCT USED FOR UNKNOWN INDICATION
     Dosage: 5 MG, QD
     Route: 048
     Dates: start: 20130203, end: 20130227
  10. ORFIRIL [Suspect]
     Active Substance: VALPROIC ACID
     Dosage: 1500 MG, QD
     Route: 048
     Dates: start: 20130223, end: 20130227
  11. RAMIPRIL. [Concomitant]
     Active Substance: RAMIPRIL
     Dosage: UNK
     Route: 048
     Dates: start: 20140301
  12. ZYPREXA [Suspect]
     Active Substance: OLANZAPINE
     Dosage: UNK UNK, UNKNOWN
     Route: 048
     Dates: start: 20130301
  13. DIAZEPAM. [Suspect]
     Active Substance: DIAZEPAM
     Indication: PRODUCT USED FOR UNKNOWN INDICATION
     Dosage: 10 MG, QD
     Route: 048
     Dates: start: 20130203, end: 20130206
  14. DIAZEPAM. [Suspect]
     Active Substance: DIAZEPAM
     Dosage: 15 MG, QD
     Route: 048
     Dates: start: 20130207, end: 20130227
  15. BISOPROLOL [Concomitant]
     Active Substance: BISOPROLOL
     Dosage: UNK
     Route: 048
     Dates: start: 20130301

REACTIONS (1)
  - Hyperammonaemic encephalopathy [Recovered/Resolved]

NARRATIVE: CASE EVENT DATE: 20130227
